FAERS Safety Report 6988891-1 (Version None)
Quarter: 2010Q3

REPORT INFORMATION
  Report Type: 
  Country: None (occurrence: None)
  Receive Date: 20100916
  Receipt Date: 20100908
  Transmission Date: 20110219
  Serious: Yes (Hospitalization)
  Sender: FDA-Public Use
  Company Number: US-AMGEN-KDC429019

PATIENT
  Sex: Male

DRUGS (18)
  1. DENOSUMAB [Suspect]
     Indication: BONE DENSITY DECREASED
     Route: 058
     Dates: start: 20091013
  2. PREDNISONE [Suspect]
     Route: 048
     Dates: start: 20100501
  3. ADVAIR DISKUS 100/50 [Suspect]
     Route: 055
     Dates: start: 20090501
  4. COUMADIN [Suspect]
     Route: 048
     Dates: start: 20100524
  5. METFORMIN [Concomitant]
     Route: 048
     Dates: start: 20100320
  6. PRILOSEC [Concomitant]
     Route: 048
  7. ALBUTEROL [Concomitant]
     Route: 055
  8. LIPITOR [Concomitant]
     Route: 048
  9. ARICEPT [Concomitant]
     Route: 048
  10. SIMVASTATIN [Concomitant]
     Route: 048
  11. VERAPAMIL [Concomitant]
     Route: 048
  12. SPIRIVA [Concomitant]
     Route: 055
  13. LISINOPRIL [Concomitant]
     Route: 048
  14. LASIX [Concomitant]
     Route: 048
  15. ASPIRIN [Concomitant]
  16. COLACE [Concomitant]
  17. LOPRESSOR [Concomitant]
     Route: 048
  18. VICODIN [Concomitant]

REACTIONS (2)
  - CELLULITIS [None]
  - POSTOPERATIVE WOUND COMPLICATION [None]
